FAERS Safety Report 15909009 (Version 6)
Quarter: 2019Q4

REPORT INFORMATION
  Report Type: Report from Study
  Country: US (occurrence: US)
  Receive Date: 20190204
  Receipt Date: 20191114
  Transmission Date: 20200122
  Serious: Yes (Hospitalization, Other)
  Sender: FDA-Public Use
  Company Number: US-ACTELION-A-US2019-185511

PATIENT
  Age: 55 Year
  Sex: Female
  Weight: 98.87 kg

DRUGS (2)
  1. ADEMPAS [Suspect]
     Active Substance: RIOCIGUAT
     Indication: PRODUCT USED FOR UNKNOWN INDICATION
     Dosage: 2 MG
     Route: 065
  2. OPSUMIT [Suspect]
     Active Substance: MACITENTAN
     Indication: PULMONARY ARTERIAL HYPERTENSION
     Dosage: 10 MG, QD
     Route: 048

REACTIONS (10)
  - Vomiting [Unknown]
  - Headache [Recovered/Resolved]
  - Hordeolum [Unknown]
  - Epistaxis [Unknown]
  - Nausea [Unknown]
  - Eye infection [Unknown]
  - Blood count abnormal [Unknown]
  - Diarrhoea [Recovered/Resolved]
  - Urine odour abnormal [Unknown]
  - Medical device implantation [Unknown]

NARRATIVE: CASE EVENT DATE: 20190328
